FAERS Safety Report 13045372 (Version 1)
Quarter: 2016Q4

REPORT INFORMATION
  Report Type: Spontaneous
  Country: SE (occurrence: SE)
  Receive Date: 20161220
  Receipt Date: 20161220
  Transmission Date: 20170207
  Serious: Yes (Life-Threatening)
  Sender: FDA-Public Use
  Company Number: SE-ASTRAZENECA-2016SF31477

PATIENT
  Age: 70 Year
  Sex: Female

DRUGS (6)
  1. ATORVASTATIN [Concomitant]
     Active Substance: ATORVASTATIN
  2. ARIXTRA [Concomitant]
     Active Substance: FONDAPARINUX SODIUM
  3. IMOVANE [Concomitant]
     Active Substance: ZOPICLONE
  4. BRILIQUE [Suspect]
     Active Substance: TICAGRELOR
     Indication: ACUTE MYOCARDIAL INFARCTION
     Route: 048
     Dates: start: 20160915, end: 20160918
  5. TROMBYL [Concomitant]
     Active Substance: ASPIRIN
  6. INSUMAN [Concomitant]
     Active Substance: INSULIN HUMAN

REACTIONS (2)
  - Oesophagitis [Unknown]
  - Duodenal ulcer [Unknown]

NARRATIVE: CASE EVENT DATE: 20160919
